FAERS Safety Report 10203638 (Version 1)
Quarter: 2014Q2

REPORT INFORMATION
  Report Type: Spontaneous
  Country: US (occurrence: None)
  Receive Date: 20140523
  Receipt Date: 20140523
  Transmission Date: 20141212
  Serious: Yes (Hospitalization)
  Sender: FDA-Public Use
  Company Number: 2348603

PATIENT
  Age: 55 Year
  Sex: Male
  Weight: 96.16 kg

DRUGS (4)
  1. TOPOTECAN [Suspect]
     Indication: PRODUCT USED FOR UNKNOWN INDICATION
     Dosage: UNKNOWN, 2 CYCLES, 5 DAYS EACH, INJECTION, (CYCLICAL)
  2. (DEXAMETHASONE) [Concomitant]
  3. (DILAUDID) [Concomitant]
  4. (MS-CONTIN) [Concomitant]

REACTIONS (3)
  - Glossitis [None]
  - Tongue necrosis [None]
  - Herpes virus infection [None]
